FAERS Safety Report 8433499-4 (Version None)
Quarter: 2012Q2

REPORT INFORMATION
  Report Type: 
  Country: None (occurrence: None)
  Receive Date: 20120613
  Receipt Date: 20120604
  Transmission Date: 20120825
  Serious: Yes (Hospitalization)
  Sender: FDA-Public Use
  Company Number: FR-PURDUE-GBR-2012-0010206

PATIENT
  Age: 62 Year
  Sex: Female

DRUGS (9)
  1. LEVEMIR [Concomitant]
     Dosage: 38 U/L, UNK
  2. NOVORAPID [Concomitant]
     Dosage: UNK, TID
  3. FUROSEMIDE [Concomitant]
     Dosage: 20 MG, UNK
  4. TERACIN [Concomitant]
  5. ATARAX [Suspect]
     Indication: PRODUCT USED FOR UNKNOWN INDICATION
     Dosage: 100 MG, UNK
  6. HYDROMORPHONE HCL [Suspect]
     Indication: SCIATICA
     Dosage: 16 MG, DAILY
     Route: 048
  7. ACARBOSE [Concomitant]
     Dosage: 100 MG, TID
  8. METFORMIN HCL [Concomitant]
     Dosage: 1 GRAM, TID
  9. LEVOTHYROXINE SODIUM [Concomitant]
     Dosage: 75 MG, UNK

REACTIONS (3)
  - SEPSIS [None]
  - RENAL FAILURE ACUTE [None]
  - ACCIDENTAL OVERDOSE [None]
